FAERS Safety Report 5907380-6 (Version None)
Quarter: 2008Q4

REPORT INFORMATION
  Report Type: 
  Country: None (occurrence: None)
  Receive Date: 20081003
  Receipt Date: 20081002
  Transmission Date: 20090506
  Serious: Yes (Death)
  Sender: FDA-Public Use
  Company Number: GB-ASTRAZENECA-2008GB01839

PATIENT
  Age: 25656 Day
  Sex: Male
  Weight: 99 kg

DRUGS (10)
  1. BUPIVACAINE [Suspect]
     Indication: PAIN
     Route: 037
     Dates: start: 20080724, end: 20080916
  2. MORPHINE [Suspect]
     Indication: PAIN
     Route: 058
     Dates: start: 20080916
  3. MORPHINE [Suspect]
     Route: 037
     Dates: start: 20080724, end: 20080916
  4. FUROSEMIDE [Concomitant]
     Indication: FLUID RETENTION
     Route: 048
     Dates: start: 20080731, end: 20080816
  5. ATENOLOL [Concomitant]
     Indication: MYOCARDIAL ISCHAEMIA
     Route: 048
     Dates: start: 20040101, end: 20080816
  6. ASPIRIN [Concomitant]
     Indication: MYOCARDIAL ISCHAEMIA
     Route: 048
     Dates: start: 20040126, end: 20080816
  7. LOSARTAN [Concomitant]
     Indication: MYOCARDIAL ISCHAEMIA
     Route: 048
     Dates: start: 20040126, end: 20080816
  8. NITROFURANTOIN [Concomitant]
     Indication: URINARY TRACT INFECTION
     Route: 048
     Dates: start: 20080623, end: 20080816
  9. GABAPENTIN [Concomitant]
     Indication: PAIN
     Route: 048
     Dates: start: 20080611, end: 20080816
  10. BUPRENORPHINE HCL [Concomitant]
     Indication: PAIN
     Dosage: BUPRENORPHINE TRANSDERMAL PATCH 10MCG/HR - WEEKLY PATCH
     Dates: start: 20080611, end: 20080816

REACTIONS (1)
  - DEATH [None]
